FAERS Safety Report 9296217 (Version 3)
Quarter: 2013Q2

REPORT INFORMATION
  Report Type: Spontaneous
  Country: GB (occurrence: GB)
  Receive Date: 20130517
  Receipt Date: 20130627
  Transmission Date: 20140414
  Serious: Yes (Other)
  Sender: FDA-Public Use
  Company Number: GB-GLAXOSMITHKLINE-B0891075A

PATIENT
  Sex: Male

DRUGS (3)
  1. VENTOLIN [Suspect]
     Indication: EMPHYSEMA
     Route: 055
  2. OINTMENT [Concomitant]
     Indication: RASH
     Route: 061
  3. CREAM [Concomitant]
     Indication: RASH
     Route: 061

REACTIONS (3)
  - Foreign body aspiration [Recovered/Resolved]
  - Cough [Recovered/Resolved]
  - Product quality issue [Unknown]
